FAERS Safety Report 10933944 (Version 1)
Quarter: 2015Q1

REPORT INFORMATION
  Report Type: Spontaneous
  Country: CH (occurrence: CH)
  Receive Date: 20150320
  Receipt Date: 20150320
  Transmission Date: 20150721
  Serious: Yes (Death, Life-Threatening, Hospitalization, Other)
  Sender: FDA-Public Use
  Company Number: CH-009507513-1503CHE009274

PATIENT
  Age: 66 Year
  Sex: Male

DRUGS (13)
  1. ADALAT [Concomitant]
     Active Substance: NIFEDIPINE
     Dosage: 10 MG, Q4H (6 PER 1 DAY)
     Route: 048
     Dates: start: 20141121, end: 20150116
  2. PANTOZOL [Concomitant]
     Active Substance: PANTOPRAZOLE SODIUM
     Dosage: UNK
     Dates: start: 20141121, end: 20150116
  3. GAVISCON (ALUMINUM HYDROXIDE (+) SODIUM ALGINATE) [Concomitant]
     Dosage: UNK
     Dates: end: 20150116
  4. CORDARONE [Suspect]
     Active Substance: AMIODARONE HYDROCHLORIDE
     Indication: CORONARY ARTERY DISEASE
     Dosage: 200 MG, ONCE DAILY
     Route: 048
     Dates: start: 20141121, end: 20150116
  5. BELOC (METOPROLOL SUCCINATE) [Concomitant]
     Dosage: UNK
     Dates: start: 20141121, end: 20150116
  6. ALLOPUR [Concomitant]
     Active Substance: ALLOPURINOL
     Dosage: UNK
     Dates: start: 20141121, end: 20150116
  7. INEGY [Suspect]
     Active Substance: EZETIMIBE\SIMVASTATIN
     Indication: CORONARY ARTERY DISEASE
     Dosage: 40MG/10 MG, ONCE DAILY
     Route: 048
     Dates: start: 20141121, end: 20150107
  8. CELLCEPT [Concomitant]
     Active Substance: MYCOPHENOLATE MOFETIL\MYCOPHENOLATE MOFETIL HYDROCHLORIDE
     Dosage: UNK
     Dates: start: 20141121, end: 20150116
  9. SANDIMMUNE [Suspect]
     Active Substance: CYCLOSPORINE
     Indication: CORONARY ARTERY DISEASE
     Dosage: 25 MG, BID
     Route: 048
     Dates: start: 20141121, end: 20150122
  10. REMERON [Concomitant]
     Active Substance: MIRTAZAPINE
     Dosage: UNK
     Dates: start: 20140114, end: 20150116
  11. WILD VI DE 3 [Concomitant]
     Dosage: UNK
     Dates: start: 20141121
  12. DIFLUCAN [Suspect]
     Active Substance: FLUCONAZOLE
     Indication: OESOPHAGEAL CANDIDIASIS
     Dosage: 250 MG, ONCE
     Route: 048
     Dates: start: 20150107, end: 20150107
  13. TOREM [Concomitant]
     Active Substance: TORSEMIDE
     Dosage: UNK
     Dates: start: 20141121, end: 20150116

REACTIONS (2)
  - Medication error [Fatal]
  - Rhabdomyolysis [Fatal]

NARRATIVE: CASE EVENT DATE: 20141121
